FAERS Safety Report 19742981 (Version 1)
Quarter: 2021Q3

REPORT INFORMATION
  Report Type: Spontaneous
  Country: US (occurrence: US)
  Receive Date: 20210825
  Receipt Date: 20210825
  Transmission Date: 20211014
  Serious: No
  Sender: FDA-Public Use
  Company Number: US-IPSEN BIOPHARMACEUTICALS, INC.-2021-20376

PATIENT
  Sex: Female

DRUGS (2)
  1. SOMAVERT [Concomitant]
     Active Substance: PEGVISOMANT
  2. SOMATULINE DEPOT [Suspect]
     Active Substance: LANREOTIDE ACETATE
     Indication: ACROMEGALY
     Dosage: 120MG/0.5ML EVERY 28 DAYS (INJECTION SITE: UNKNOWN)
     Route: 058

REACTIONS (5)
  - Injection site reaction [Unknown]
  - Product use complaint [Unknown]
  - Nausea [Unknown]
  - Drug ineffective [Unknown]
  - Weight increased [Unknown]
